FAERS Safety Report 5784620-8 (Version None)
Quarter: 2008Q2

REPORT INFORMATION
  Report Type: 
  Country: None (occurrence: None)
  Receive Date: 20080605
  Receipt Date: 20080410
  Transmission Date: 20081010
  Serious: No
  Sender: FDA-Public Use
  Company Number: A0722044A

PATIENT
  Age: 27 Year
  Sex: Female

DRUGS (2)
  1. ALLI [Suspect]
     Dates: start: 20080203, end: 20080301
  2. MULTI-VITAMIN [Concomitant]

REACTIONS (3)
  - CHEST PAIN [None]
  - NERVOUSNESS [None]
  - PAIN IN EXTREMITY [None]
